FAERS Safety Report 6843723-7 (Version None)
Quarter: 2010Q3

REPORT INFORMATION
  Report Type: 
  Country: None (occurrence: None)
  Receive Date: 20100715
  Receipt Date: 20100706
  Transmission Date: 20110219
  Serious: Yes (Life-Threatening)
  Sender: FDA-Public Use
  Company Number: GB-BRISTOL-MYERS SQUIBB COMPANY-15182348

PATIENT
  Age: 3 Month
  Sex: Female
  Weight: 5 kg

DRUGS (2)
  1. NYSTATIN [Suspect]
     Indication: ORAL CANDIDIASIS
  2. DAKTARIN [Suspect]
     Indication: ORAL CANDIDIASIS
     Route: 061
     Dates: start: 20100602, end: 20100603

REACTIONS (6)
  - DRUG INEFFECTIVE [None]
  - EYELID OEDEMA [None]
  - HYPERSENSITIVITY [None]
  - PARAESTHESIA ORAL [None]
  - RESPIRATORY ARREST [None]
  - SWOLLEN TONGUE [None]
